FAERS Safety Report 6035278-4 (Version None)
Quarter: 2009Q1

REPORT INFORMATION
  Report Type: 
  Country: None (occurrence: None)
  Receive Date: 20090109
  Receipt Date: 20090106
  Transmission Date: 20090719
  Serious: Yes (Death, Hospitalization, Other)
  Sender: FDA-Public Use
  Company Number: 2008SP024388

PATIENT
  Age: 73 Year
  Sex: Male

DRUGS (5)
  1. TEMODAR [Suspect]
     Indication: GLIOBLASTOMA MULTIFORME
     Dosage: 300 MG; QD; PO
     Route: 048
     Dates: start: 20081002, end: 20081106
  2. ZOLPIDEM [Concomitant]
  3. FAMOTIDINE [Concomitant]
  4. KEPPRA [Concomitant]
  5. FUROSEMIDE [Concomitant]

REACTIONS (4)
  - CARDIAC ARREST [None]
  - NEUTROPENIC SEPSIS [None]
  - PANCYTOPENIA [None]
  - PHARYNGITIS [None]
